APPROVED DRUG PRODUCT: HYDROCODONE BITARTRATE AND ACETAMINOPHEN
Active Ingredient: ACETAMINOPHEN; HYDROCODONE BITARTRATE
Strength: 300MG;10MG
Dosage Form/Route: TABLET;ORAL
Application: A205001 | Product #003
Applicant: STRIDES PHARMA INTERNATIONAL AG
Approved: Jul 5, 2016 | RLD: No | RS: No | Type: DISCN